FAERS Safety Report 14023656 (Version 1)
Quarter: 2017Q3

REPORT INFORMATION
  Report Type: Spontaneous
  Country: US (occurrence: US)
  Receive Date: 20170929
  Receipt Date: 20170929
  Transmission Date: 20171128
  Serious: Yes (Other)
  Sender: FDA-Public Use
  Company Number: US-MYLANLABS-2017M1061487

PATIENT
  Age: 17 Year
  Sex: Female

DRUGS (1)
  1. CIDOFOVIR. [Suspect]
     Active Substance: CIDOFOVIR
     Indication: CYTOMEGALOVIRUS INFECTION
     Dosage: UNK
     Dates: start: 201709

REACTIONS (3)
  - Infection [Unknown]
  - Cytomegalovirus infection [Unknown]
  - Cytomegalovirus chorioretinitis [Unknown]

NARRATIVE: CASE EVENT DATE: 201709
